FAERS Safety Report 23951371 (Version 1)
Quarter: 2024Q2

REPORT INFORMATION
  Report Type: Spontaneous
  Country: NL (occurrence: NL)
  Receive Date: 20240607
  Receipt Date: 20240607
  Transmission Date: 20240716
  Serious: Yes (Other)
  Sender: FDA-Public Use
  Company Number: None

PATIENT
  Age: 64 Year
  Sex: Male
  Weight: 75 kg

DRUGS (4)
  1. CITALOPRAM [Suspect]
     Active Substance: CITALOPRAM\CITALOPRAM HYDROBROMIDE
     Indication: Serotonin deficiency
     Dosage: 20 MILLIGRAM, QD,(1XPER D THEN STARTED 20 MG)
     Route: 065
     Dates: end: 202401
  2. CITALOPRAM [Suspect]
     Active Substance: CITALOPRAM\CITALOPRAM HYDROBROMIDE
     Dosage: 10 MILLIGRAM,QD,(USED 10 MG ONCE DAILY FOR 3 WEEKS)
     Route: 065
     Dates: start: 20240103
  3. CITALOPRAM [Suspect]
     Active Substance: CITALOPRAM\CITALOPRAM HYDROBROMIDE
     Dosage: 1 DOSAGE FORM,(CONTINUED USE FOR 7 WEEKS, THEN TAPERED OFF IN 1 MONTH, STOPPED COMPLETELY ON 19-4)
     Route: 065
     Dates: end: 20240419
  4. TAMSULOSIN HYDROCHLORIDE [Concomitant]
     Active Substance: TAMSULOSIN HYDROCHLORIDE
     Dosage: 0.4 MILLIGRAM,(REGULATED-RELEASE CAPSULE, 0.4 MG (MILLIGRAMS))
     Route: 065

REACTIONS (10)
  - Erectile dysfunction [Recovered/Resolved]
  - Chest discomfort [Recovered/Resolved]
  - Head discomfort [Recovering/Resolving]
  - Dyspnoea [Recovered/Resolved]
  - Flatulence [Not Recovered/Not Resolved]
  - Abnormal dreams [Not Recovered/Not Resolved]
  - Tremor [Recovering/Resolving]
  - Sleep disorder [Not Recovered/Not Resolved]
  - Diarrhoea [Not Recovered/Not Resolved]
  - Libido decreased [Recovered/Resolved]
